FAERS Safety Report 5966767-6 (Version None)
Quarter: 2008Q4

REPORT INFORMATION
  Report Type: 
  Country: None (occurrence: None)
  Receive Date: 20081125
  Receipt Date: 20081111
  Transmission Date: 20090506
  Serious: Yes (Other)
  Sender: FDA-Public Use
  Company Number: JP-ALLERGAN-0814034US

PATIENT
  Sex: Female

DRUGS (6)
  1. ALESION TABLET [Suspect]
     Indication: DERMATITIS ATOPIC
     Dosage: 20 MG, UNK
     Route: 048
     Dates: start: 20080901, end: 20081001
  2. FAMOTIDINE [Concomitant]
     Indication: ABDOMINAL DISCOMFORT
     Dosage: 20 MG, UNK
     Route: 048
     Dates: start: 20081021, end: 20081025
  3. FAMOTIDINE [Concomitant]
     Indication: DYSPEPSIA
  4. ONON [Concomitant]
     Indication: ASTHMA
     Dosage: 450 MG, UNK
     Route: 048
     Dates: start: 20010101
  5. RIKKUNSHI-TO [Concomitant]
     Indication: ABDOMINAL DISCOMFORT
     Dosage: 20 MG, UNK
     Route: 048
     Dates: start: 20081025, end: 20081031
  6. RIKKUNSHI-TO [Concomitant]
     Indication: DYSPEPSIA

REACTIONS (1)
  - RENAL IMPAIRMENT [None]
